FAERS Safety Report 25869320 (Version 2)
Quarter: 2025Q4

REPORT INFORMATION
  Report Type: Spontaneous
  Country: US (occurrence: US)
  Receive Date: 20251001
  Receipt Date: 20251013
  Transmission Date: 20260118
  Serious: Yes (Hospitalization, Other)
  Sender: ROCHE
  Company Number: US-ROCHE-10000400557

PATIENT

DRUGS (22)
  1. PULMOZYME [Suspect]
     Active Substance: DORNASE ALFA
     Indication: Product used for unknown indication
     Dosage: 2.5MG PER 2.5ML VIAL TWICE DAILY
     Route: 065
     Dates: start: 2022
  2. PHILLIPS ORIGINAL MILK OF MAGNESIA [Concomitant]
     Active Substance: MAGNESIUM HYDROXIDE
  3. CoQ [Concomitant]
  4. CRESTOR [Concomitant]
     Active Substance: ROSUVASTATIN CALCIUM
  5. CARVEDILOL [Concomitant]
     Active Substance: CARVEDILOL
  6. FOLBIC [Concomitant]
     Active Substance: CYANOCOBALAMIN\FOLIC ACID\PYRIDOXINE
     Dosage: 2-2.5-25MG
  7. JARDIANCE [Concomitant]
     Active Substance: EMPAGLIFLOZIN
  8. ISOSORBIDE [Concomitant]
     Active Substance: ISOSORBIDE
  9. OMEPRAZOLE [Concomitant]
     Active Substance: OMEPRAZOLE
  10. PROAIR HFA [Concomitant]
     Active Substance: ALBUTEROL SULFATE
  11. ALBUTEROL SULFATE [Concomitant]
     Active Substance: ALBUTEROL SULFATE
  12. BUDESONIDE [Concomitant]
     Active Substance: BUDESONIDE
  13. AZELASTINE [Concomitant]
     Active Substance: AZELASTINE
  14. IPRATROPIUM BROMIDE [Concomitant]
     Active Substance: IPRATROPIUM BROMIDE
  15. HYDROCORTISONE [Concomitant]
     Active Substance: HYDROCORTISONE
  16. BACTRIM [Concomitant]
     Active Substance: SULFAMETHOXAZOLE\TRIMETHOPRIM
  17. AZITHROMYCIN [Concomitant]
     Active Substance: AZITHROMYCIN
  18. CARBOXYMETHYLCELLULOSE SODIUM\GLYCERIN [Concomitant]
     Active Substance: CARBOXYMETHYLCELLULOSE SODIUM\GLYCERIN
  19. REPATHA [Concomitant]
     Active Substance: EVOLOCUMAB
  20. TIOTROPIUM [Concomitant]
     Active Substance: TIOTROPIUM
  21. ZINC [Concomitant]
     Active Substance: ZINC
  22. TOUJEO [Concomitant]
     Active Substance: INSULIN GLARGINE

REACTIONS (5)
  - Pneumonia [Unknown]
  - Pulmonary oedema [Unknown]
  - Pyrexia [Unknown]
  - Cough [Unknown]
  - Increased bronchial secretion [Unknown]
